FAERS Safety Report 5196518-7 (Version None)
Quarter: 2006Q4

REPORT INFORMATION
  Report Type: 
  Country: None (occurrence: None)
  Receive Date: 20061227
  Receipt Date: 20061213
  Transmission Date: 20070319
  Serious: Yes (Hospitalization)
  Sender: FDA-Public Use
  Company Number: 2006-06180

PATIENT
  Age: 27 Year
  Sex: Male

DRUGS (8)
  1. MORPHINE SULFATE [Suspect]
     Indication: PAIN
     Dosage: 10 MG, SINGLE POST-OP DAY 11, INTRAVENOUS, SEE IMAGE
     Route: 042
     Dates: start: 20060101, end: 20060101
  2. PARACETAMOL [Concomitant]
  3. DICLOFENAC SODIUM [Concomitant]
  4. LIDOCAINE [Concomitant]
  5. BUPIVACAINE [Concomitant]
  6. EPHEDRINE [Concomitant]
  7. MIDAZOLAM HYDROCHLORIDE [Concomitant]
  8. MANNITOL [Concomitant]

REACTIONS (1)
  - ACUTE GENERALISED EXANTHEMATOUS PUSTULOSIS [None]
